FAERS Safety Report 16761563 (Version 1)
Quarter: 2019Q3

REPORT INFORMATION
  Report Type: Spontaneous
  Country: US (occurrence: US)
  Receive Date: 20190830
  Receipt Date: 20190830
  Transmission Date: 20191005
  Serious: No
  Sender: FDA-Public Use
  Company Number: US-SA-2019SA238323

PATIENT
  Age: 51 Year
  Sex: Female
  Weight: 127 kg

DRUGS (28)
  1. AMITRIPTYLINE [Concomitant]
     Active Substance: AMITRIPTYLINE
     Dosage: 1 DF (1 TAB), HS
     Route: 048
     Dates: start: 20190404
  2. LISINOPRIL. [Concomitant]
     Active Substance: LISINOPRIL
     Dosage: 1 DF (1 TAB), QD
     Route: 048
     Dates: start: 20190404
  3. IRON [Concomitant]
     Active Substance: IRON
     Dosage: 1 DF (1 TAB), QD
     Route: 048
     Dates: start: 20190404
  4. HEPARIN [Concomitant]
     Active Substance: HEPARIN SODIUM
     Dosage: 1000 UN/ML
     Route: 042
     Dates: start: 20190430
  5. PAZEO [Concomitant]
     Active Substance: OLOPATADINE HYDROCHLORIDE
     Dosage: 1 DF (GTT), QD
     Dates: start: 20190430
  6. SINGULAIR [Concomitant]
     Active Substance: MONTELUKAST SODIUM
     Dosage: 1 DF (TAB)QD,
     Route: 048
     Dates: start: 20190404
  7. ZYRTEC [Concomitant]
     Active Substance: CETIRIZINE HYDROCHLORIDE
     Dosage: 1 DF TAB, QD
     Route: 048
     Dates: start: 20190404
  8. GEODON [ZIPRASIDONE HYDROCHLORIDE] [Concomitant]
     Dosage: 2 DF (2 TAB), QD
     Route: 048
     Dates: start: 20190404
  9. MIRTAZAPINE. [Concomitant]
     Active Substance: MIRTAZAPINE
     Dosage: 15 MG, HS
     Route: 048
     Dates: start: 20190430
  10. DOCUSATE [Concomitant]
     Active Substance: DOCUSATE
     Dosage: 100 MG, PRN
     Route: 048
     Dates: start: 20190430
  11. METFORMIN [Concomitant]
     Active Substance: METFORMIN HYDROCHLORIDE
     Dosage: 2 DF (2  TAB), BID
     Route: 048
     Dates: start: 20190404
  12. FABRAZYME [Suspect]
     Active Substance: AGALSIDASE BETA
     Indication: FABRY^S DISEASE
     Dosage: 110 MG, QOW
     Route: 041
     Dates: start: 20190430
  13. NORMAL SALINE [Concomitant]
     Active Substance: SODIUM CHLORIDE
     Dosage: .90 %
     Route: 042
     Dates: start: 20190430
  14. EPINEPHRINE. [Concomitant]
     Active Substance: EPINEPHRINE
     Dosage: 0.3 MG, PRN
     Route: 030
     Dates: start: 20190430
  15. GAS-X [Concomitant]
     Active Substance: DIMETHICONE
     Dosage: 125 MG, PRN
     Route: 048
     Dates: start: 20190430
  16. OMEPRAZOLE. [Concomitant]
     Active Substance: OMEPRAZOLE
     Dosage: 2 DF(2 CAP), QD
     Route: 048
     Dates: start: 20190404
  17. SPIRIVA [Concomitant]
     Active Substance: TIOTROPIUM BROMIDE MONOHYDRATE
     Dosage: 1 DF (PUFF), QD
     Route: 048
     Dates: start: 20190404
  18. PROAIR HFA [Concomitant]
     Active Substance: ALBUTEROL SULFATE
     Dosage: 1 DF (1 PUFF), QD
     Route: 048
     Dates: start: 20190404
  19. SOLU-MEDROL [Concomitant]
     Active Substance: METHYLPREDNISOLONE SODIUM SUCCINATE
     Dosage: 125 MG
     Route: 042
     Dates: start: 20190430
  20. ACETAMINOPHEN. [Concomitant]
     Active Substance: ACETAMINOPHEN
     Dosage: 500 MG, PRN
     Route: 048
     Dates: start: 20190430
  21. DIPHENHYDRAMINE. [Concomitant]
     Active Substance: DIPHENHYDRAMINE
     Dosage: 50 MG
     Route: 042
     Dates: start: 20190430
  22. SODIUM CHLORIDE. [Concomitant]
     Active Substance: SODIUM CHLORIDE
     Dosage: 0.90 %
     Route: 042
     Dates: start: 20190430
  23. STERILE WATER [Concomitant]
     Active Substance: WATER
     Dosage: 1 DF
     Route: 042
     Dates: start: 20190430
  24. OMEPRAZOLE [OMEPRAZOLE SODIUM] [Concomitant]
     Active Substance: OMEPRAZOLE SODIUM
     Dosage: 40 MG, BID,
     Route: 048
     Dates: start: 20190430
  25. GABAPENTIN. [Concomitant]
     Active Substance: GABAPENTIN
     Dosage: 1 DF (1 CAP), BID
     Route: 048
     Dates: start: 20190404
  26. BENADRYL [Concomitant]
     Active Substance: DIPHENHYDRAMINE HYDROCHLORIDE
     Dosage: UNK UNK, UNK
     Route: 065
  27. ONDANSETRON [Concomitant]
     Active Substance: ONDANSETRON
     Dosage: 4 MG, PRN
     Route: 048
     Dates: start: 20190430
  28. VITAMIN D3 [Concomitant]
     Active Substance: CHOLECALCIFEROL
     Dosage: 1 DF (1 CAP), QD
     Route: 048
     Dates: start: 20190404

REACTIONS (1)
  - Pruritus [Unknown]
